FAERS Safety Report 23420986 (Version 2)
Quarter: 2024Q1

REPORT INFORMATION
  Report Type: Spontaneous
  Country: CH (occurrence: CH)
  Receive Date: 20240119
  Receipt Date: 20240220
  Transmission Date: 20240409
  Serious: Yes (Life-Threatening, Hospitalization, Other)
  Sender: FDA-Public Use
  Company Number: CH-TEVA-VS-3134299

PATIENT
  Age: 8 Decade
  Sex: Female

DRUGS (2)
  1. PRAMIPEXOLE [Suspect]
     Active Substance: PRAMIPEXOLE\PRAMIPEXOLE DIHYDROCHLORIDE
     Indication: Parkinson^s disease
     Dosage: EXTENDED RELEASE PRAMIPEXOLE
     Route: 065
  2. BENSERAZIDE\LEVODOPA [Suspect]
     Active Substance: BENSERAZIDE\LEVODOPA
     Indication: Parkinson^s disease
     Route: 065

REACTIONS (9)
  - Hypertension [Recovered/Resolved]
  - Drug ineffective [Unknown]
  - Toxicity to various agents [Recovered/Resolved]
  - Coma [Recovered/Resolved]
  - Generalised tonic-clonic seizure [Recovered/Resolved]
  - Areflexia [Recovered/Resolved]
  - Overdose [Recovered/Resolved]
  - Bradypnoea [Recovered/Resolved]
  - Bradycardia [Recovered/Resolved]
